FAERS Safety Report 20730367 (Version 1)
Quarter: 2022Q2

REPORT INFORMATION
  Report Type: Spontaneous
  Country: CH (occurrence: CH)
  Receive Date: 20220420
  Receipt Date: 20220420
  Transmission Date: 20220721
  Serious: Yes (Other)
  Sender: FDA-Public Use
  Company Number: CH-LUPIN PHARMACEUTICALS INC.-2022-05829

PATIENT
  Age: 73 Year
  Sex: Female

DRUGS (4)
  1. DULOXETINE [Interacting]
     Active Substance: DULOXETINE
     Indication: Depression
     Dosage: UNK (PREVIOUSLY RECEIVED)
     Route: 048
  2. DULOXETINE [Interacting]
     Active Substance: DULOXETINE
     Dosage: 60 MG, QD (RESTARTED)
     Route: 048
  3. CIPROFLOXACIN [Interacting]
     Active Substance: CIPROFLOXACIN
     Indication: Antibiotic therapy
     Dosage: 400 MG, BID
     Route: 065
  4. TIGECYCLINE [Concomitant]
     Active Substance: TIGECYCLINE
     Indication: Antibiotic therapy
     Dosage: 50 MG, BID
     Route: 042

REACTIONS (3)
  - Depressed level of consciousness [Recovered/Resolved]
  - Drug interaction [Unknown]
  - Contraindicated product administered [Unknown]
